FAERS Safety Report 20873790 (Version 1)
Quarter: 2022Q2

REPORT INFORMATION
  Report Type: Spontaneous
  Country: US (occurrence: US)
  Receive Date: 20220525
  Receipt Date: 20220525
  Transmission Date: 20220720
  Serious: Yes (Other)
  Sender: FDA-Public Use
  Company Number: US-PFIZER INC-202200719693

PATIENT

DRUGS (1)
  1. EFFEXOR XR [Suspect]
     Active Substance: VENLAFAXINE HYDROCHLORIDE
     Dosage: 75 MG, 3X/DAY
     Route: 048

REACTIONS (6)
  - Suicidal ideation [Unknown]
  - Hallucination, visual [Unknown]
  - Insomnia [Unknown]
  - Anxiety [Unknown]
  - Nervousness [Unknown]
  - Off label use [Unknown]
